FAERS Safety Report 12820729 (Version 2)
Quarter: 2016Q4

REPORT INFORMATION
  Report Type: Other
  Country: SE (occurrence: SE)
  Receive Date: 20161006
  Receipt Date: 20161017
  Transmission Date: 20170207
  Serious: Yes (Other)
  Sender: FDA-Public Use
  Company Number: SE-CELLTRION INC.-2016SE009576

PATIENT

DRUGS (3)
  1. METHOTREXATE. [Concomitant]
     Active Substance: METHOTREXATE
     Route: 065
  2. REMSIMA [Suspect]
     Active Substance: INFLIXIMAB
     Dosage: 200 MG, UNK
     Route: 065
     Dates: start: 20160905, end: 20160905
  3. REMSIMA [Suspect]
     Active Substance: INFLIXIMAB
     Indication: RHEUMATOID ARTHRITIS
     Dosage: 200 MG, UNK
     Route: 065
     Dates: start: 20151203, end: 20151203

REACTIONS (1)
  - Squamous cell carcinoma [Recovered/Resolved]

NARRATIVE: CASE EVENT DATE: 201605
